FAERS Safety Report 21903311 (Version 1)
Quarter: 2023Q1

REPORT INFORMATION
  Report Type: Report from Study
  Country: US (occurrence: US)
  Receive Date: 20230124
  Receipt Date: 20230124
  Transmission Date: 20230418
  Serious: Yes (Other)
  Sender: FDA-Public Use
  Company Number: US-002147023-NVSC2023US011370

PATIENT
  Sex: Female

DRUGS (2)
  1. ENTRESTO [Suspect]
     Active Substance: SACUBITRIL\VALSARTAN
     Indication: Cardiac failure congestive
     Dosage: 1 DOSAGE FORM, BID (24/26 MG STARTED ABOUT A WEEK AGO))
     Route: 048
     Dates: start: 20230110
  2. UNSPECIFIED INGREDIENT [Concomitant]
     Active Substance: UNSPECIFIED INGREDIENT
     Indication: Product used for unknown indication
     Dosage: UNK
     Route: 065

REACTIONS (10)
  - Ejection fraction abnormal [Unknown]
  - Chest pain [Unknown]
  - Cold sweat [Unknown]
  - Dyspnoea [Unknown]
  - Dyspepsia [Unknown]
  - Mitral valve disease [Unknown]
  - Peripheral swelling [Unknown]
  - Joint swelling [Unknown]
  - Hot flush [Unknown]
  - Feeling of body temperature change [Unknown]
